FAERS Safety Report 13012704 (Version 1)
Quarter: 2016Q4

REPORT INFORMATION
  Report Type: Spontaneous
  Country: US (occurrence: US)
  Receive Date: 20161209
  Receipt Date: 20161209
  Transmission Date: 20170207
  Serious: No
  Sender: FDA-Public Use
  Company Number: US-TEVA-691106USA

PATIENT
  Age: 79 Year
  Sex: Male

DRUGS (4)
  1. MUCUS ER [Suspect]
     Active Substance: GUAIFENESIN
     Route: 048
     Dates: start: 20160815, end: 20160815
  2. MULTIVITAMIN [Concomitant]
     Active Substance: VITAMINS
  3. MUCUS ER [Suspect]
     Active Substance: GUAIFENESIN
     Route: 048
     Dates: start: 20160818, end: 20160818
  4. VITAMIN D [Concomitant]
     Active Substance: CHOLECALCIFEROL

REACTIONS (5)
  - Throat irritation [Not Recovered/Not Resolved]
  - Product use issue [Unknown]
  - Dysphagia [Not Recovered/Not Resolved]
  - Foreign body [Recovered/Resolved]
  - Wrong technique in product usage process [Unknown]

NARRATIVE: CASE EVENT DATE: 20160815
